FAERS Safety Report 10992085 (Version 1)
Quarter: 2015Q2

REPORT INFORMATION
  Report Type: Spontaneous
  Country: US (occurrence: US)
  Receive Date: 20150406
  Receipt Date: 20150406
  Transmission Date: 20150821
  Serious: No
  Sender: FDA-Public Use
  Company Number: US-009507513-1503USA012202

PATIENT
  Age: 21 Year
  Sex: Female
  Weight: 83.9 kg

DRUGS (1)
  1. NUVARING [Suspect]
     Active Substance: ETHINYL ESTRADIOL\ETONOGESTREL
     Indication: CONTRACEPTION
     Dosage: 2 RINGS, UNK
     Route: 067

REACTIONS (3)
  - Incorrect drug administration duration [Unknown]
  - Overdose [Unknown]
  - No adverse event [Unknown]
